FAERS Safety Report 6666704-5 (Version None)
Quarter: 2010Q2

REPORT INFORMATION
  Report Type: 
  Country: None (occurrence: None)
  Receive Date: 20100405
  Receipt Date: 20100324
  Transmission Date: 20101027
  Serious: Yes (Hospitalization, Other)
  Sender: FDA-Public Use
  Company Number: FR-JNJFOC-20100210561

PATIENT
  Sex: Male
  Weight: 75 kg

DRUGS (2)
  1. RISPERDAL CONSTA [Suspect]
     Indication: DELIRIUM
     Route: 030
  2. RISPERDAL CONSTA [Suspect]
     Route: 030

REACTIONS (4)
  - ASTHENIA [None]
  - DYSKINESIA [None]
  - EYELID PTOSIS [None]
  - OFF LABEL USE [None]
